FAERS Safety Report 6598734-6 (Version None)
Quarter: 2010Q1

REPORT INFORMATION
  Report Type: 
  Country: None (occurrence: None)
  Receive Date: 20100224
  Receipt Date: 20100209
  Transmission Date: 20100710
  Serious: Yes (Hospitalization)
  Sender: FDA-Public Use
  Company Number: FR-PFIZER INC-2010021391

PATIENT
  Age: 31 Year
  Sex: Female

DRUGS (22)
  1. ATARAX [Suspect]
     Dosage: 25 MG, 2X/DAY
     Route: 048
     Dates: start: 20090112, end: 20100103
  2. ATARAX [Suspect]
     Dosage: 25 MG, 2X/DAY
     Route: 048
     Dates: start: 20100105, end: 20100107
  3. ABILIFY [Suspect]
     Dosage: UNK
     Route: 048
     Dates: start: 20091212, end: 20091231
  4. ABILIFY [Suspect]
     Dosage: UNK
     Route: 048
     Dates: start: 20100101, end: 20100102
  5. ABILIFY [Suspect]
     Dosage: UNK
     Route: 048
     Dates: start: 20100107, end: 20100108
  6. NORSET [Concomitant]
     Dosage: UNK
     Dates: start: 20091212, end: 20100103
  7. NORSET [Concomitant]
     Dosage: UNK
     Dates: start: 20100105, end: 20100112
  8. AVLOCARDYL [Concomitant]
     Dosage: UNK
     Dates: start: 20091212, end: 20100103
  9. AVLOCARDYL [Concomitant]
     Dosage: UNK
     Dates: start: 20100105, end: 20100112
  10. TARDYFERON-FOL [Concomitant]
     Dosage: UNK
     Dates: start: 20091212, end: 20091231
  11. TARDYFERON-FOL [Concomitant]
     Dosage: UNK
     Dates: start: 20091231, end: 20100103
  12. TARDYFERON-FOL [Concomitant]
     Dosage: UNK
     Dates: start: 20100105, end: 20100112
  13. VITAMIN B1 AND B6 [Concomitant]
     Dosage: UNK
     Dates: start: 20091212, end: 20091231
  14. VITAMIN B1 AND B6 [Concomitant]
     Dosage: UNK
     Dates: start: 20100105, end: 20100112
  15. NEXIUM [Concomitant]
     Dosage: UNK
     Dates: start: 20091212, end: 20091231
  16. NEXIUM [Concomitant]
     Dosage: UNK
     Dates: start: 20100105, end: 20100112
  17. SERESTA [Concomitant]
     Dosage: UNK
     Dates: start: 20091229, end: 20091230
  18. SERESTA [Concomitant]
     Dosage: UNK
     Dates: start: 20091231, end: 20100103
  19. NEURONTIN [Concomitant]
     Dosage: UNK
     Dates: start: 20091231, end: 20100103
  20. DIFFU K [Concomitant]
     Dosage: UNK
     Dates: start: 20091231, end: 20100103
  21. DIFFU K [Concomitant]
     Dosage: UNK
     Dates: start: 20100105, end: 20100112
  22. VALIUM [Concomitant]

REACTIONS (2)
  - ENCEPHALOPATHY [None]
  - SOMNOLENCE [None]
